FAERS Safety Report 7831971-9 (Version None)
Quarter: 2011Q4

REPORT INFORMATION
  Report Type: 
  Country: None (occurrence: None)
  Receive Date: 20111021
  Receipt Date: 20111013
  Transmission Date: 20120403
  Serious: Yes (Hospitalization, Other)
  Sender: FDA-Public Use
  Company Number: IE-ROCHE-GNE322191

PATIENT
  Sex: Male

DRUGS (20)
  1. XOLAIR [Suspect]
     Indication: ASTHMA
     Dosage: 300 MG, Q2W
     Route: 058
     Dates: start: 20110623
  2. SINGULAIR [Concomitant]
  3. ASPIRIN [Concomitant]
  4. PROSCAR [Concomitant]
  5. ALLOPURINOL [Concomitant]
  6. QUININE [Concomitant]
  7. CETIRIZINE HCL [Concomitant]
  8. XOLAIR [Suspect]
     Dosage: 300 MG, Q2W
     Dates: start: 20110711
  9. SPIRIVA [Concomitant]
  10. DELTACORTRIL [Concomitant]
  11. ZIMOVANE [Concomitant]
  12. DURAGESIC-100 [Concomitant]
  13. CALCIUM CARBONATE [Concomitant]
  14. BONIVA [Concomitant]
  15. AXID [Concomitant]
  16. PHYLLOCONTIN [Concomitant]
  17. VENTOLIN [Concomitant]
  18. PANTOPRAZOLE [Concomitant]
  19. DIOVAN [Concomitant]
  20. FLUTICASONE PROPIONATE/SALMETEROL [Concomitant]

REACTIONS (2)
  - ASTHMA [None]
  - UPPER RESPIRATORY TRACT INFECTION [None]
